FAERS Safety Report 9223646 (Version 1)
Quarter: 2013Q2

REPORT INFORMATION
  Report Type: Spontaneous
  Country: US (occurrence: US)
  Receive Date: 20130410
  Receipt Date: 20130410
  Transmission Date: 20140414
  Serious: Yes (Other)
  Sender: FDA-Public Use
  Company Number: US-PFIZER INC-2013108964

PATIENT
  Sex: Male

DRUGS (1)
  1. ADVIL [Suspect]
     Dosage: UNK
     Dates: start: 2013

REACTIONS (1)
  - Diabetes mellitus [Unknown]
